FAERS Safety Report 9052068 (Version 3)
Quarter: 2013Q1

REPORT INFORMATION
  Report Type: Spontaneous
  Country: US (occurrence: US)
  Receive Date: 20130206
  Receipt Date: 20130313
  Transmission Date: 20140127
  Serious: Yes (Other)
  Sender: FDA-Public Use
  Company Number: PHEH2013US001530

PATIENT
  Age: 58 None
  Sex: Female
  Weight: 59 kg

DRUGS (1)
  1. GLEEVEC [Suspect]
     Indication: CHRONIC MYELOID LEUKAEMIA
     Dosage: 400 MG, BID
     Dates: start: 20080829

REACTIONS (3)
  - Metastases to peritoneum [Unknown]
  - Second primary malignancy [Unknown]
  - Drug ineffective [Unknown]
